FAERS Safety Report 8998242 (Version 1)
Quarter: 2013Q1

REPORT INFORMATION
  Report Type: Spontaneous
  Country: US (occurrence: US)
  Receive Date: 20130104
  Receipt Date: 20130104
  Transmission Date: 20140127
  Serious: No
  Sender: FDA-Public Use
  Company Number: US-JNJFOC-20121211065

PATIENT
  Sex: Female

DRUGS (10)
  1. RISPERDAL [Suspect]
     Indication: BIPOLAR DISORDER
     Route: 048
     Dates: end: 2007
  2. RISPERDAL [Suspect]
     Indication: BIPOLAR DISORDER
     Dosage: 3MG, 3 TIMES A DAY
     Route: 048
     Dates: start: 2007
  3. RISPERDAL [Suspect]
     Indication: BIPOLAR DISORDER
     Dosage: 6MG IN AM
     Route: 048
     Dates: start: 201205
  4. RISPERDAL [Suspect]
     Indication: BIPOLAR DISORDER
     Dosage: 3 MG IN MORNING, 1 MG IN AFTER NOON   3MG AT NIGHT
     Route: 048
     Dates: end: 201205
  5. RISPERDAL [Suspect]
     Indication: SCHIZOPHRENIA
     Dosage: 6MG IN AM
     Route: 048
     Dates: start: 201205
  6. RISPERDAL [Suspect]
     Indication: SCHIZOPHRENIA
     Dosage: 3 MG IN MORNING, 1 MG IN AFTER NOON   3MG AT NIGHT
     Route: 048
     Dates: end: 201205
  7. RISPERDAL [Suspect]
     Indication: SCHIZOPHRENIA
     Route: 048
     Dates: end: 2007
  8. RISPERDAL [Suspect]
     Indication: SCHIZOPHRENIA
     Dosage: 3MG, 3 TIMES A DAY
     Route: 048
     Dates: start: 2007
  9. INVEGA SUSTENNA [Suspect]
     Indication: BIPOLAR DISORDER
     Route: 030
  10. INVEGA SUSTENNA [Suspect]
     Indication: SCHIZOPHRENIA
     Route: 030

REACTIONS (6)
  - Insomnia [Unknown]
  - Screaming [Not Recovered/Not Resolved]
  - Irritability [Not Recovered/Not Resolved]
  - Adverse event [Unknown]
  - Disturbance in social behaviour [Not Recovered/Not Resolved]
  - Personality change [Not Recovered/Not Resolved]
